FAERS Safety Report 9295177 (Version 1)
Quarter: 2013Q2

REPORT INFORMATION
  Report Type: Report from Study
  Country: US (occurrence: US)
  Receive Date: 20130517
  Receipt Date: 20130517
  Transmission Date: 20140414
  Serious: Yes (Other)
  Sender: FDA-Public Use
  Company Number: US-BAYER-2013-053787

PATIENT
  Age: 84 Year
  Sex: Female

DRUGS (2)
  1. STIVARGA [Suspect]
     Indication: COLON CANCER
     Dosage: 40 MG, 4 TABLETS, DAILY
     Route: 048
     Dates: start: 20130411
  2. STIVARGA [Suspect]
     Indication: COLON CANCER
     Dosage: 40 MG, 2 TABLETS, DAILY
     Route: 048
     Dates: end: 20130501

REACTIONS (4)
  - Dehydration [Recovered/Resolved]
  - Diarrhoea [Recovered/Resolved]
  - Dysphonia [Not Recovered/Not Resolved]
  - Rash generalised [None]
